FAERS Safety Report 4990241-7 (Version None)
Quarter: 2006Q2

REPORT INFORMATION
  Report Type: 
  Country: None (occurrence: None)
  Receive Date: 20060503
  Receipt Date: 20060330
  Transmission Date: 20061013
  Serious: Yes (Hospitalization)
  Sender: FDA-Public Use
  Company Number: JP-AVENTIS-200611050JP

PATIENT
  Age: 70 Year
  Sex: Female
  Weight: 43 kg

DRUGS (3)
  1. DAONIL [Suspect]
     Indication: DIABETES MELLITUS
     Route: 048
     Dates: end: 20060322
  2. BASEN [Concomitant]
     Indication: DIABETES MELLITUS
     Route: 048
     Dates: end: 20060322
  3. NORVASC [Concomitant]
     Indication: HYPERTENSION
     Route: 048
     Dates: end: 20060322

REACTIONS (1)
  - HYPOGLYCAEMIC COMA [None]
